FAERS Safety Report 10870294 (Version 1)
Quarter: 2015Q1

REPORT INFORMATION
  Report Type: Spontaneous
  Country: DE (occurrence: DE)
  Receive Date: 20150226
  Receipt Date: 20150226
  Transmission Date: 20150721
  Serious: Yes (Death, Other)
  Sender: FDA-Public Use
  Company Number: DE-JNJFOC-20150218992

PATIENT

DRUGS (3)
  1. IBUPROFEN. [Suspect]
     Active Substance: IBUPROFEN
     Indication: PATENT DUCTUS ARTERIOSUS
     Dosage: 10 AND 10 MG/KG; 5 AND 5 MG/KG
     Route: 065
  2. IBUPROFEN. [Suspect]
     Active Substance: IBUPROFEN
     Indication: PATENT DUCTUS ARTERIOSUS
     Dosage: 10,5, AND 5 MG/KG
     Route: 065
  3. IBUPROFEN. [Suspect]
     Active Substance: IBUPROFEN
     Indication: PATENT DUCTUS ARTERIOSUS
     Dosage: 20, 10, AND 10 MG/KG
     Route: 065

REACTIONS (9)
  - Death [Fatal]
  - Necrotising colitis [Unknown]
  - Product use issue [Unknown]
  - Drug ineffective for unapproved indication [Unknown]
  - Bronchopulmonary dysplasia [Unknown]
  - Retinopathy of prematurity [Unknown]
  - Therapeutic response unexpected [Unknown]
  - Intraventricular haemorrhage [Unknown]
  - Patent ductus arteriosus [Unknown]
